FAERS Safety Report 6291047-1 (Version None)
Quarter: 2009Q3

REPORT INFORMATION
  Report Type: 
  Country: None (occurrence: None)
  Receive Date: 20090730
  Receipt Date: 20090721
  Transmission Date: 20100115
  Serious: Yes (Other)
  Sender: FDA-Public Use
  Company Number: US-PFIZER INC-2009232751

PATIENT
  Age: 31 Year
  Sex: Female

DRUGS (4)
  1. GEODON [Suspect]
     Indication: BIPOLAR DISORDER
     Dosage: 80 MG, 2X/DAY
     Dates: start: 20081001, end: 20090623
  2. ESCITALOPRAM [Concomitant]
  3. BUPROPION [Concomitant]
  4. CLONAZEPAM [Concomitant]

REACTIONS (2)
  - AKATHISIA [None]
  - ANXIETY [None]
